FAERS Safety Report 8824324 (Version 2)
Quarter: 2012Q4

REPORT INFORMATION
  Report Type: 
  Country: US (occurrence: US)
  Receive Date: 20121004
  Receipt Date: 20121009
  Transmission Date: 20130627
  Serious: Yes (Other)
  Sender: FDA-Public Use
  Company Number: US-009507513-1210USA000995

PATIENT
  Age: 61 Year
  Sex: Female

DRUGS (5)
  1. ZETIA [Suspect]
     Indication: HYPERLIPIDAEMIA
     Dosage: 10 mg, qd
     Route: 048
     Dates: start: 2009
  2. WELLBUTRIN [Concomitant]
  3. CELEXA [Concomitant]
  4. PROPRANOLOL HYDROCHLORIDE [Concomitant]
  5. DIOVAN [Concomitant]

REACTIONS (1)
  - Gastric bypass [Not Recovered/Not Resolved]
